FAERS Safety Report 25607649 (Version 1)
Quarter: 2025Q3

REPORT INFORMATION
  Report Type: Report from Study
  Country: US (occurrence: US)
  Receive Date: 20250725
  Receipt Date: 20250725
  Transmission Date: 20251021
  Serious: Yes (Other)
  Sender: ABBVIE
  Company Number: US-ABBVIE-6202245

PATIENT
  Age: 46 Year
  Sex: Male

DRUGS (4)
  1. SKYRIZI [Suspect]
     Active Substance: RISANKIZUMAB-RZAA
     Indication: Psoriasis
     Route: 058
     Dates: start: 20240810, end: 20240810
  2. SKYRIZI [Suspect]
     Active Substance: RISANKIZUMAB-RZAA
     Indication: Psoriatic arthropathy
     Route: 058
     Dates: start: 20240912, end: 20240912
  3. SKYRIZI [Suspect]
     Active Substance: RISANKIZUMAB-RZAA
     Dosage: FORM STRENGTH 150 MILLIGRAM
     Route: 058
     Dates: start: 20241205
  4. SKYRIZI [Suspect]
     Active Substance: RISANKIZUMAB-RZAA
     Route: 058

REACTIONS (6)
  - Hepatic cirrhosis [Unknown]
  - Psoriatic arthropathy [Unknown]
  - Gait disturbance [Unknown]
  - Arthralgia [Not Recovered/Not Resolved]
  - Mobility decreased [Unknown]
  - Grip strength decreased [Unknown]

NARRATIVE: CASE EVENT DATE: 20240101
